FAERS Safety Report 6208125-5 (Version None)
Quarter: 2009Q2

REPORT INFORMATION
  Report Type: 
  Country: None (occurrence: None)
  Receive Date: 20090529
  Receipt Date: 20090527
  Transmission Date: 20091009
  Serious: Yes (Hospitalization)
  Sender: FDA-Public Use
  Company Number: JP-ASTRAZENECA-2008AP08040

PATIENT
  Age: 65 Year
  Sex: Male
  Weight: 63 kg

DRUGS (10)
  1. IRESSA [Suspect]
     Indication: LUNG NEOPLASM MALIGNANT
     Route: 048
     Dates: start: 20080925, end: 20081010
  2. AMARYL [Concomitant]
     Indication: DIABETES MELLITUS
     Route: 048
     Dates: start: 19990101, end: 20081011
  3. OLMETEC [Concomitant]
     Indication: HYPERTENSION
     Route: 048
     Dates: start: 20070515, end: 20081011
  4. LAC-B [Concomitant]
     Indication: DIARRHOEA
     Route: 048
     Dates: start: 20071007, end: 20081011
  5. MOBIC [Concomitant]
     Indication: WOUND COMPLICATION
     Route: 048
     Dates: start: 20071117, end: 20081011
  6. MUCOSTA [Concomitant]
     Indication: GASTRITIS
     Route: 048
     Dates: start: 20071123, end: 20081011
  7. OXYCONTIN [Concomitant]
     Indication: CANCER PAIN
     Route: 048
     Dates: start: 20071129, end: 20081030
  8. PREDONINE [Concomitant]
     Indication: CANCER PAIN
     Route: 048
     Dates: start: 20071225, end: 20081011
  9. FERROMIA [Concomitant]
     Indication: HAEMOPTYSIS
     Route: 048
     Dates: start: 20081007, end: 20081011
  10. ADONA [Concomitant]
     Indication: HAEMOPTYSIS
     Route: 048
     Dates: start: 20081007, end: 20081011

REACTIONS (4)
  - DIARRHOEA [None]
  - HAEMOPTYSIS [None]
  - RENAL FAILURE ACUTE [None]
  - VOMITING [None]
